FAERS Safety Report 12803608 (Version 1)
Quarter: 2016Q4

REPORT INFORMATION
  Report Type: Spontaneous
  Country: US (occurrence: US)
  Receive Date: 20161003
  Receipt Date: 20161003
  Transmission Date: 20170207
  Serious: Yes (Hospitalization)
  Sender: FDA-Public Use
  Company Number: US-BAUSCH-BL-2016-024135

PATIENT
  Sex: Female

DRUGS (2)
  1. XIFAXAN [Suspect]
     Active Substance: RIFAXIMIN
     Route: 065
  2. XIFAXAN [Suspect]
     Active Substance: RIFAXIMIN
     Indication: HEPATIC CIRRHOSIS
     Route: 065

REACTIONS (4)
  - Hepatic failure [Unknown]
  - Treatment noncompliance [Unknown]
  - Renal failure [Unknown]
  - Hospice care [Unknown]
